FAERS Safety Report 19360959 (Version 2)
Quarter: 2021Q2

REPORT INFORMATION
  Report Type: Report from Study
  Country: GB (occurrence: GB)
  Receive Date: 20210602
  Receipt Date: 20210614
  Transmission Date: 20210717
  Serious: Yes (Other)
  Sender: FDA-Public Use
  Company Number: GB-SAMSUNG BIOEPIS-SB-2021-12917

PATIENT
  Age: 76 Year
  Sex: Female

DRUGS (1)
  1. BENEPALI [Suspect]
     Active Substance: ETANERCEPT
     Indication: RHEUMATOID ARTHRITIS
     Route: 058
     Dates: start: 20210106

REACTIONS (6)
  - Lower respiratory tract infection [Unknown]
  - Anaemia [Unknown]
  - Bronchitis [Unknown]
  - Dyspnoea [Unknown]
  - Therapeutic response shortened [Unknown]
  - Peripheral swelling [Unknown]
